FAERS Safety Report 9429481 (Version 1)
Quarter: 2013Q3

REPORT INFORMATION
  Report Type: Spontaneous
  Country: US (occurrence: US)
  Receive Date: 20130730
  Receipt Date: 20130730
  Transmission Date: 20140515
  Serious: No
  Sender: FDA-Public Use
  Company Number: US-ABBOTT-13P-163-1055977-00

PATIENT
  Age: 56 Year
  Sex: Female
  Weight: 63.56 kg

DRUGS (6)
  1. NIASPAN (COATED) [Suspect]
     Indication: BLOOD CHOLESTEROL INCREASED
     Dates: start: 201212, end: 20130222
  2. NIASPAN (COATED) [Suspect]
     Dates: start: 20130223
  3. NOVOLOG [Concomitant]
     Indication: DIABETES MELLITUS
  4. LANTUS [Concomitant]
     Indication: DIABETES MELLITUS
  5. LEVOTHROXINE [Concomitant]
     Indication: HYPOTHYROIDISM
  6. VITAMIN D [Concomitant]
     Indication: VITAMIN D DEFICIENCY

REACTIONS (2)
  - Blood glucose increased [Not Recovered/Not Resolved]
  - Flushing [Recovered/Resolved]
